FAERS Safety Report 19570833 (Version 3)
Quarter: 2021Q3

REPORT INFORMATION
  Report Type: Spontaneous
  Country: US (occurrence: US)
  Receive Date: 20210716
  Receipt Date: 20210719
  Transmission Date: 20211014
  Serious: Yes (Other)
  Sender: FDA-Public Use
  Company Number: US-ALXN-A202108031

PATIENT
  Sex: Male

DRUGS (1)
  1. ULTOMIRIS [Suspect]
     Active Substance: RAVULIZUMAB-CWVZ
     Indication: PAROXYSMAL NOCTURNAL HAEMOGLOBINURIA
     Dosage: UNK
     Route: 065

REACTIONS (6)
  - Red blood cell count increased [Unknown]
  - Platelet count decreased [Unknown]
  - Transfusion [Unknown]
  - Drug ineffective [Unknown]
  - Exposure to radiation [Unknown]
  - Blood lactate dehydrogenase increased [Unknown]
